FAERS Safety Report 23859303 (Version 1)
Quarter: 2024Q2

REPORT INFORMATION
  Report Type: Spontaneous
  Country: US (occurrence: US)
  Receive Date: 20240515
  Receipt Date: 20240515
  Transmission Date: 20240716
  Serious: Yes (Other)
  Sender: FDA-Public Use
  Company Number: US-BAUSCH-BL-2024-007294

PATIENT
  Age: 30 Year
  Sex: Female
  Weight: 92.1 kg

DRUGS (18)
  1. LORAZEPAM [Interacting]
     Active Substance: LORAZEPAM
     Indication: Narcolepsy
     Route: 065
  2. LORAZEPAM [Interacting]
     Active Substance: LORAZEPAM
     Route: 065
     Dates: start: 2024
  3. LORAZEPAM [Interacting]
     Active Substance: LORAZEPAM
     Route: 065
     Dates: start: 20240403
  4. LUMRYZ [Suspect]
     Active Substance: SODIUM OXYBATE
     Indication: Product used for unknown indication
     Route: 048
     Dates: start: 20240229, end: 202403
  5. LUMRYZ [Suspect]
     Active Substance: SODIUM OXYBATE
     Route: 048
     Dates: start: 202403, end: 2024
  6. LUMRYZ [Suspect]
     Active Substance: SODIUM OXYBATE
     Route: 065
     Dates: start: 20240403, end: 20240405
  7. AZSTARYS [Suspect]
     Active Substance: DEXMETHYLPHENIDATE HYDROCHLORIDE\SERDEXMETHYLPHENIDATE CHLORIDE
     Indication: Product used for unknown indication
     Dosage: 32.2/7.2 MG
     Route: 065
  8. AZSTARYS [Suspect]
     Active Substance: DEXMETHYLPHENIDATE HYDROCHLORIDE\SERDEXMETHYLPHENIDATE CHLORIDE
     Dosage: FOR ABOUT 2 WEEKS THERAPY WAS INTERRUPTED
     Route: 065
     Dates: end: 202403
  9. AZSTARYS [Suspect]
     Active Substance: DEXMETHYLPHENIDATE HYDROCHLORIDE\SERDEXMETHYLPHENIDATE CHLORIDE
     Dosage: RESTARTED THE MEDICATION
     Route: 065
     Dates: start: 2024
  10. PROZAC [Concomitant]
     Active Substance: FLUOXETINE HYDROCHLORIDE
     Indication: Product used for unknown indication
  11. ABILIFY [Concomitant]
     Active Substance: ARIPIPRAZOLE
     Indication: Product used for unknown indication
  12. LAMICTAL [Concomitant]
     Active Substance: LAMOTRIGINE
     Indication: Product used for unknown indication
  13. SUNOSI [Concomitant]
     Active Substance: SOLRIAMFETOL
     Indication: Product used for unknown indication
  14. VITAMINS [Concomitant]
     Active Substance: VITAMINS
     Indication: Product used for unknown indication
  15. FIBER THERAPY (CALCIUM POLYCARBOPHIL) [Concomitant]
     Active Substance: CALCIUM POLYCARBOPHIL
     Indication: Product used for unknown indication
  16. FLONASE ALLERGY RELIEF [Concomitant]
     Active Substance: FLUTICASONE PROPIONATE
     Indication: Product used for unknown indication
  17. IRON\VITAMINS [Concomitant]
     Active Substance: IRON\VITAMINS
     Indication: Product used for unknown indication
  18. LEVONORGESTREL, ETHINYL ESTRADIOL, AND FERROUS BISGLYCINATE [Concomitant]
     Indication: Product used for unknown indication

REACTIONS (7)
  - Hallucination, visual [Recovering/Resolving]
  - Unevaluable event [Unknown]
  - Dehydration [Recovering/Resolving]
  - Gait disturbance [Recovered/Resolved]
  - Panic attack [Recovering/Resolving]
  - Nausea [Recovering/Resolving]
  - Contraindicated product administered [Unknown]

NARRATIVE: CASE EVENT DATE: 20240101
